FAERS Safety Report 8423535-3 (Version None)
Quarter: 2012Q2

REPORT INFORMATION
  Report Type: 
  Country: None (occurrence: None)
  Receive Date: 20120608
  Receipt Date: 20120530
  Transmission Date: 20120825
  Serious: Yes (Hospitalization)
  Sender: FDA-Public Use
  Company Number: US-MYLANLABS-2012S1011047

PATIENT
  Age: 55 Year
  Sex: Female

DRUGS (4)
  1. COZAAR [Concomitant]
     Indication: BLOOD PRESSURE
     Route: 048
  2. METFORMIN HYDROCHLORIDE [Concomitant]
     Indication: DIABETES MELLITUS
     Route: 048
  3. LIPITOR [Concomitant]
     Indication: BLOOD CHOLESTEROL
     Route: 048
  4. METOPROLOL TARTRATE [Suspect]
     Route: 048
     Dates: start: 20090101, end: 20120525

REACTIONS (6)
  - DYSPNOEA [None]
  - DIZZINESS [None]
  - TREMOR [None]
  - PALPITATIONS [None]
  - HEART RATE INCREASED [None]
  - NAUSEA [None]
